FAERS Safety Report 5199171-1 (Version None)
Quarter: 2007Q1

REPORT INFORMATION
  Report Type: 
  Country: None (occurrence: None)
  Receive Date: 20070104
  Receipt Date: 20061227
  Transmission Date: 20070707
  Serious: Yes (Other)
  Sender: FDA-Public Use
  Company Number: US-PFIZER INC-2007000315

PATIENT
  Sex: Male

DRUGS (5)
  1. LYRICA [Suspect]
     Indication: PAIN
  2. SEROQUEL [Concomitant]
  3. IMIPRAMINE [Concomitant]
  4. CARDURA [Concomitant]
  5. AVANDIA [Concomitant]

REACTIONS (3)
  - COORDINATION ABNORMAL [None]
  - DYSSTASIA [None]
  - FEELING DRUNK [None]
